FAERS Safety Report 4715238-3 (Version None)
Quarter: 2005Q3

REPORT INFORMATION
  Report Type: 
  Country: None (occurrence: None)
  Receive Date: 20050715
  Receipt Date: 20050707
  Transmission Date: 20060218
  Serious: Yes (Other)
  Sender: FDA-Public Use
  Company Number: AU-ROCHE-409918

PATIENT
  Age: 50 Year
  Sex: Female

DRUGS (1)
  1. VALCYTE [Suspect]
     Indication: PROPHYLAXIS
     Route: 048

REACTIONS (1)
  - DYSGEUSIA [None]
